FAERS Safety Report 12572483 (Version 2)
Quarter: 2016Q4

REPORT INFORMATION
  Report Type: Report from Study
  Country: US (occurrence: US)
  Receive Date: 20160719
  Receipt Date: 20161020
  Transmission Date: 20170207
  Serious: No
  Sender: FDA-Public Use
  Company Number: US-AMGEN-USASL2016092090

PATIENT
  Age: 55 Year
  Sex: Female

DRUGS (1)
  1. ENBREL [Suspect]
     Active Substance: ETANERCEPT
     Indication: RHEUMATOID ARTHRITIS
     Dosage: 50 MG, QWK
     Route: 065
     Dates: start: 2014

REACTIONS (10)
  - Injection site pain [Unknown]
  - Injection site reaction [Unknown]
  - Peripheral swelling [Unknown]
  - Back disorder [Unknown]
  - Injection site mass [Recovered/Resolved]
  - Injection site erythema [Unknown]
  - Injection site pruritus [Unknown]
  - Injection site irritation [Unknown]
  - Injection site swelling [Unknown]
  - Hand deformity [Unknown]

NARRATIVE: CASE EVENT DATE: 2016
